FAERS Safety Report 23627927 (Version 1)
Quarter: 2024Q1

REPORT INFORMATION
  Report Type: Spontaneous
  Country: US (occurrence: None)
  Receive Date: 20240313
  Receipt Date: 20240313
  Transmission Date: 20240410
  Serious: Yes (Death)
  Sender: FDA-Public Use
  Company Number: None

PATIENT
  Sex: Female

DRUGS (8)
  1. AMBRISENTAN [Suspect]
     Active Substance: AMBRISENTAN
     Indication: Pulmonary arterial hypertension
     Dosage: FREQUENCY : DAILY;?
     Route: 048
  2. CALCIUM [Concomitant]
     Active Substance: CALCIUM
  3. OXYCODONE HYDROCHLORIDE [Concomitant]
     Active Substance: OXYCODONE HYDROCHLORIDE
  4. UPTRAVI [Concomitant]
     Active Substance: SELEXIPAG
  5. VITAMIN C [Concomitant]
     Active Substance: ASCORBIC ACID
  6. LASIX [Concomitant]
     Active Substance: FUROSEMIDE
  7. FISH OIL [Concomitant]
     Active Substance: FISH OIL
  8. NEURONTIN [Concomitant]
     Active Substance: GABAPENTIN

REACTIONS (1)
  - Death [None]
